FAERS Safety Report 15149733 (Version 1)
Quarter: 2018Q3

REPORT INFORMATION
  Report Type: Spontaneous
  Country: US (occurrence: US)
  Receive Date: 20180716
  Receipt Date: 20180716
  Transmission Date: 20181010
  Serious: No
  Sender: FDA-Public Use
  Company Number: US-VANDA PHARMACEUTICALS, INC-2018TASUS002191

PATIENT
  Sex: Female

DRUGS (1)
  1. HETLIOZ [Suspect]
     Active Substance: TASIMELTEON
     Indication: CIRCADIAN RHYTHM SLEEP DISORDER
     Dosage: 20 MG, ONCE DAILY
     Route: 048
     Dates: start: 20180316, end: 20180425

REACTIONS (8)
  - Muscle spasms [Not Recovered/Not Resolved]
  - Irritability [Unknown]
  - Insomnia [Unknown]
  - Mood altered [Unknown]
  - Nightmare [Unknown]
  - Depression [Unknown]
  - Drug ineffective [Unknown]
  - Dyskinesia [Recovered/Resolved]
